FAERS Safety Report 25192269 (Version 3)
Quarter: 2025Q2

REPORT INFORMATION
  Report Type: Spontaneous
  Country: ES (occurrence: ES)
  Receive Date: 20250414
  Receipt Date: 20250506
  Transmission Date: 20250717
  Serious: No
  Sender: ORGANON
  Company Number: ES-ORGANON-O2503ESP000514

PATIENT
  Age: 26 Year
  Sex: Male

DRUGS (1)
  1. FINASTERIDE [Suspect]
     Active Substance: FINASTERIDE
     Route: 048
     Dates: start: 2022

REACTIONS (5)
  - Sexual dysfunction [Unknown]
  - Brain fog [Unknown]
  - Anhedonia [Unknown]
  - Cognitive disorder [Unknown]
  - Fatigue [Unknown]

NARRATIVE: CASE EVENT DATE: 20220101
